FAERS Safety Report 21774062 (Version 1)
Quarter: 2022Q4

REPORT INFORMATION
  Report Type: Spontaneous
  Country: US (occurrence: US)
  Receive Date: 20221223
  Receipt Date: 20221223
  Transmission Date: 20230113
  Serious: No
  Sender: FDA-Public Use
  Company Number: US-GILEAD-2022-0610746

PATIENT
  Age: 56 Year
  Sex: Female

DRUGS (2)
  1. DESCOVY [Suspect]
     Active Substance: EMTRICITABINE\TENOFOVIR ALAFENAMIDE FUMARATE
     Indication: HIV infection
     Route: 065
  2. ATAZANAVIR [Concomitant]
     Active Substance: ATAZANAVIR

REACTIONS (2)
  - Hepatic enzyme increased [Unknown]
  - Hepatic steatosis [Unknown]
